FAERS Safety Report 5309321-1 (Version None)
Quarter: 2007Q2

REPORT INFORMATION
  Report Type: 
  Country: None (occurrence: None)
  Receive Date: 20070425
  Receipt Date: 20070425
  Transmission Date: 20071010
  Serious: Yes (Hospitalization)
  Sender: FDA-Public Use
  Company Number: None

PATIENT
  Age: 86 Year
  Sex: Female
  Weight: 52 kg

DRUGS (7)
  1. REMERON [Suspect]
     Indication: DEPRESSION
     Dosage: 15MG PO DAILY
     Route: 048
  2. PAXIL [Suspect]
     Dosage: 10 MG PO DAILY
     Route: 048
  3. POTASSIUM ACETATE [Concomitant]
  4. MAXZIDE [Concomitant]
  5. ZOCOR [Concomitant]
  6. DALMANE [Concomitant]
  7. MEPROBAMATE [Concomitant]

REACTIONS (8)
  - ALCOHOL USE [None]
  - ASTHENIA [None]
  - BLOOD SODIUM DECREASED [None]
  - CONFUSIONAL STATE [None]
  - FALL [None]
  - INSOMNIA [None]
  - MYOCLONUS [None]
  - TREATMENT NONCOMPLIANCE [None]
